FAERS Safety Report 9702778 (Version 1)
Quarter: 2013Q4

REPORT INFORMATION
  Report Type: Spontaneous
  Country: US (occurrence: US)
  Receive Date: 20131121
  Receipt Date: 20131121
  Transmission Date: 20140711
  Serious: Yes (Death)
  Sender: FDA-Public Use
  Company Number: US-GLAXOSMITHKLINE-A1050259A

PATIENT
  Age: 68 Year
  Sex: Female

DRUGS (6)
  1. ARIXTRA [Suspect]
     Indication: LOCAL SWELLING
     Dosage: 7.5MG PER DAY
     Route: 058
     Dates: start: 20130924, end: 20131024
  2. OXYBUTYNIN [Concomitant]
  3. ATIVAN [Concomitant]
  4. FENTANYL [Concomitant]
  5. HYDROMORPHONE [Concomitant]
  6. LASIX [Concomitant]

REACTIONS (2)
  - Cervix carcinoma [Fatal]
  - Endometrial cancer [Fatal]
